FAERS Safety Report 20762260 (Version 1)
Quarter: 2022Q2

REPORT INFORMATION
  Report Type: Spontaneous
  Country: None (occurrence: US)
  Receive Date: 20220428
  Receipt Date: 20220428
  Transmission Date: 20220721
  Serious: No
  Sender: FDA-Public Use
  Company Number: US-Nuvo Pharmaceuticals Inc-2128247

PATIENT
  Sex: Male

DRUGS (1)
  1. SODIUM POLYSTYRENE SULFONATE [Suspect]
     Active Substance: SODIUM POLYSTYRENE SULFONATE
     Indication: Blood potassium increased
     Route: 065

REACTIONS (1)
  - Diarrhoea [Unknown]
